FAERS Safety Report 7368495-1 (Version None)
Quarter: 2011Q1

REPORT INFORMATION
  Report Type: 
  Country: None (occurrence: None)
  Receive Date: 20110323
  Receipt Date: 20110315
  Transmission Date: 20110831
  Serious: Yes (Other)
  Sender: FDA-Public Use
  Company Number: JP-ASTELLAS-2011JP001898

PATIENT
  Age: 34 Year
  Sex: Female

DRUGS (9)
  1. PREDNISOLONE [Concomitant]
     Indication: PANNICULITIS
     Dosage: 65 MG, UNKNOWN/D
     Route: 048
  2. PROGRAF [Suspect]
     Dosage: 4 MG, UNKNOWN/D
     Route: 048
  3. PROGRAF [Suspect]
     Indication: PANNICULITIS
     Dosage: 3 MG, UNKNOWN/D
     Route: 048
  4. PROGRAF [Suspect]
     Dosage: 1.5 MG, UNKNOWN/D
  5. PREDNISOLONE [Concomitant]
     Dosage: 50 MG, UNKNOWN/D
     Route: 048
  6. CYCLOSPORINE [Concomitant]
     Dosage: 200 MG, UNKNOWN/D
     Route: 048
  7. PENTAMIDINE ISETHIONATE [Concomitant]
     Indication: PNEUMOCYSTIS JIROVECI PNEUMONIA
     Route: 055
  8. CYCLOSPORINE [Concomitant]
     Dosage: 150 MG, UNKNOWN/D
     Route: 048
  9. CYCLOSPORINE [Concomitant]
     Indication: PANNICULITIS
     Dosage: 150 MG, UNKNOWN/D
     Route: 048

REACTIONS (2)
  - BLOOD BETA-D-GLUCAN INCREASED [None]
  - OFF LABEL USE [None]
